FAERS Safety Report 8259955-X (Version None)
Quarter: 2012Q2

REPORT INFORMATION
  Report Type: 
  Country: None (occurrence: None)
  Receive Date: 20120404
  Receipt Date: 20120326
  Transmission Date: 20120825
  Serious: Yes (Hospitalization)
  Sender: FDA-Public Use
  Company Number: DE-JNJFOC-20120311882

PATIENT
  Sex: Male
  Weight: 55.8 kg

DRUGS (1)
  1. CONCERTA [Suspect]
     Indication: ATTENTION DEFICIT/HYPERACTIVITY DISORDER
     Route: 048
     Dates: start: 20111212, end: 20120308

REACTIONS (8)
  - VASCULITIS CEREBRAL [None]
  - TACHYCARDIA [None]
  - MENINGISM [None]
  - STUPOR [None]
  - SYNCOPE [None]
  - HYPOKINESIA [None]
  - RETROGRADE AMNESIA [None]
  - CONVULSION [None]
